FAERS Safety Report 21357714 (Version 2)
Quarter: 2022Q3

REPORT INFORMATION
  Report Type: Report from Study
  Country: AR (occurrence: AR)
  Receive Date: 20220921
  Receipt Date: 20220930
  Transmission Date: 20221026
  Serious: Yes (Hospitalization)
  Sender: FDA-Public Use
  Company Number: AR-BoehringerIngelheim-2022-BI-193211

PATIENT
  Age: 65 Year
  Sex: Female
  Weight: 73 kg

DRUGS (2)
  1. OFEV [Suspect]
     Active Substance: NINTEDANIB
     Indication: Idiopathic pulmonary fibrosis
     Route: 048
     Dates: start: 20170904
  2. DELTISONE [Concomitant]
     Indication: Product used for unknown indication

REACTIONS (2)
  - Oxygen saturation decreased [Not Recovered/Not Resolved]
  - Dyspnoea [Not Recovered/Not Resolved]

NARRATIVE: CASE EVENT DATE: 20220501
